FAERS Safety Report 16474940 (Version 1)
Quarter: 2019Q2

REPORT INFORMATION
  Report Type: Spontaneous
  Country: US (occurrence: US)
  Receive Date: 20190625
  Receipt Date: 20190625
  Transmission Date: 20190711
  Serious: No
  Sender: FDA-Public Use
  Company Number: US-TEVA-2019-US-1067914

PATIENT
  Age: 21 Year
  Sex: Female

DRUGS (2)
  1. BUPROPION. [Suspect]
     Active Substance: BUPROPION
     Indication: BEHAVIOURAL THERAPY
  2. BUPROPION. [Suspect]
     Active Substance: BUPROPION
     Indication: PERINATAL DEPRESSION
     Dosage: 350 MILLIGRAM DAILY; MORNING AND EVENING DOSE
     Route: 048

REACTIONS (1)
  - Initial insomnia [Unknown]
